FAERS Safety Report 23596270 (Version 1)
Quarter: 2024Q1

REPORT INFORMATION
  Report Type: Spontaneous
  Country: US (occurrence: None)
  Receive Date: 20240304
  Receipt Date: 20240304
  Transmission Date: 20240410
  Serious: Yes (unspecified)
  Sender: FDA-Public Use
  Company Number: None

PATIENT
  Age: 17 Year
  Sex: Male
  Weight: 94.5 kg

DRUGS (3)
  1. ICY HOT MEDICATED NO MESS APPLICATOR [Suspect]
     Active Substance: MENTHOL
     Indication: Myalgia
     Dosage: AS NEEDED TOPICAL
     Route: 061
     Dates: start: 20240303, end: 20240303
  2. AUVI-Q [Concomitant]
     Active Substance: EPINEPHRINE
  3. ZYXAL [Concomitant]

REACTIONS (1)
  - Chemical burn [None]

NARRATIVE: CASE EVENT DATE: 20240303
